FAERS Safety Report 19808788 (Version 3)
Quarter: 2021Q4

REPORT INFORMATION
  Report Type: Report from Study
  Country: DE (occurrence: DE)
  Receive Date: 20210908
  Receipt Date: 20211014
  Transmission Date: 20220303
  Serious: Yes (Death, Hospitalization, Other)
  Sender: FDA-Public Use
  Company Number: DE-AMGEN-DEUNI2021125976

PATIENT
  Age: 60 Year
  Sex: Male

DRUGS (2)
  1. HYDROMORPHONE HYDROCHLORIDE [Suspect]
     Active Substance: HYDROMORPHONE HYDROCHLORIDE
     Indication: Product used for unknown indication
     Dosage: 96 MG, DAILY (32 MILLIGRAM, TID 3 SEPARATED DOSES)
     Route: 048
     Dates: start: 202105
  2. HYDROMORPHONE HYDROCHLORIDE [Suspect]
     Active Substance: HYDROMORPHONE HYDROCHLORIDE
     Dosage: 96 MG, DAILY (32 MILLIGRAM, TID 3 SEPARATED DOSES)
     Route: 048
     Dates: start: 202105, end: 20210813

REACTIONS (2)
  - Respiratory failure [Fatal]
  - Sopor [Recovering/Resolving]

NARRATIVE: CASE EVENT DATE: 20210808
